FAERS Safety Report 8202165-2 (Version None)
Quarter: 2012Q1

REPORT INFORMATION
  Report Type: 
  Country: None (occurrence: None)
  Receive Date: 20120312
  Receipt Date: 20120307
  Transmission Date: 20120608
  Serious: Yes (Hospitalization, Other)
  Sender: FDA-Public Use
  Company Number: CA-PFIZER INC-2007076210

PATIENT
  Age: 70 Year
  Sex: Female

DRUGS (6)
  1. INDAPAMIDE [Concomitant]
     Dosage: 1.25 MG
     Route: 048
  2. SUNITINIB MALATE [Suspect]
     Indication: BREAST CANCER METASTATIC
     Dosage: 37.5 MG, 1X/DAY
     Route: 048
     Dates: start: 20070628, end: 20070822
  3. EXEMESTANE [Suspect]
     Indication: BREAST CANCER METASTATIC
     Dosage: 25 MG, 1X/DAY
     Route: 048
     Dates: start: 20070628
  4. NOVO-METOPROL [Concomitant]
     Dosage: 100 MG
     Route: 048
  5. ALLOPURINOL [Concomitant]
     Dosage: 100 MG
  6. CALCIUM CARBONATE [Concomitant]
     Dosage: 600 MG

REACTIONS (1)
  - PANCREATITIS ACUTE [None]
